FAERS Safety Report 10578318 (Version 1)
Quarter: 2014Q4

REPORT INFORMATION
  Report Type: Spontaneous
  Country: US (occurrence: None)
  Receive Date: 20141111
  Receipt Date: 20141111
  Transmission Date: 20150529
  Serious: No
  Sender: FDA-Public Use
  Company Number: None

PATIENT

DRUGS (1)
  1. PROLIA [Suspect]
     Active Substance: DENOSUMAB

REACTIONS (26)
  - Sleep disorder due to general medical condition, insomnia type [None]
  - Musculoskeletal pain [None]
  - Hyperaesthesia [None]
  - Decreased activity [None]
  - Arthralgia [None]
  - Pain in extremity [None]
  - Blood urine present [None]
  - Back pain [None]
  - Mass [None]
  - Tinnitus [None]
  - Confusional state [None]
  - Swollen tongue [None]
  - Dysphagia [None]
  - Palpitations [None]
  - Impaired work ability [None]
  - Myalgia [None]
  - Hypoaesthesia [None]
  - Skin burning sensation [None]
  - Burning sensation [None]
  - Muscle spasms [None]
  - Musculoskeletal disorder [None]
  - Fatigue [None]
  - Influenza like illness [None]
  - Gait disturbance [None]
  - Paraesthesia [None]
  - Groin pain [None]
